FAERS Safety Report 6676387-6 (Version None)
Quarter: 2010Q2

REPORT INFORMATION
  Report Type: 
  Country: None (occurrence: None)
  Receive Date: 20100412
  Receipt Date: 20100329
  Transmission Date: 20101027
  Serious: Yes (Hospitalization)
  Sender: FDA-Public Use
  Company Number: PHHO2010IL04496

PATIENT
  Sex: Male
  Weight: 65.2 kg

DRUGS (3)
  1. TEGRETOL [Suspect]
     Dosage: 600 MG, BID
     Route: 048
  2. TEGRETOL [Suspect]
     Dosage: 500 MG, BID
     Route: 048
  3. GABAPENTIN [Concomitant]
     Dosage: UNK

REACTIONS (4)
  - ASTHENIA [None]
  - DIZZINESS [None]
  - DRUG INTERACTION [None]
  - DRUG TOXICITY [None]
